FAERS Safety Report 7288288-3 (Version None)
Quarter: 2011Q1

REPORT INFORMATION
  Report Type: 
  Country: None (occurrence: None)
  Receive Date: 20110211
  Receipt Date: 20110202
  Transmission Date: 20110831
  Serious: Yes (Hospitalization, Other)
  Sender: FDA-Public Use
  Company Number: US-JNJFOC-20100805550

PATIENT
  Sex: Male

DRUGS (2)
  1. LEVAQUIN [Suspect]
     Dosage: 500MG/100ML
     Route: 042
  2. LEVAQUIN [Suspect]
     Indication: POST PROCEDURAL INFECTION
     Route: 048

REACTIONS (3)
  - TENDON DISORDER [None]
  - ROTATOR CUFF SYNDROME [None]
  - TENDONITIS [None]
